FAERS Safety Report 9521388 (Version 1)
Quarter: 2013Q1

REPORT INFORMATION
  Report Type: Spontaneous
  Country: US (occurrence: None)
  Receive Date: 20130305
  Receipt Date: 20130305
  Transmission Date: 20140127
  Serious: Yes (Other)
  Sender: FDA-Public Use
  Company Number: 163-21880-12072529

PATIENT
  Age: 72 Year
  Sex: Male
  Weight: 81.65 kg

DRUGS (12)
  1. REVLIMID (LENALIDOMIDE) (CAPSULES) [Suspect]
     Indication: PLASMA CELL MYELOMA
     Route: 048
     Dates: start: 200707
  2. BACTRIM (BACTRIM) [Concomitant]
  3. ACYCLOVIR (ACICLOVIR) (ACICLOVIR) [Concomitant]
  4. AMIODARONE (AMIODRONE) [Concomitant]
  5. LEVOTHYROXINE (LEVOTHYROXINE) [Concomitant]
  6. VITAMIN D-3 (COLECALCIFEROL) [Concomitant]
  7. ATENOLOL (ATENOLOL) [Concomitant]
  8. WARFARIN (WARFARIN) [Concomitant]
  9. SIMVASTATIN (SIMVASTATIN) [Concomitant]
  10. ASPIRIN (ACETYLSALICYLIC ACID) [Concomitant]
  11. DEXAMETHASONE (DEXAMETHASONE) [Concomitant]
  12. ZOMETA (ZOLEDRONIC ACID) [Concomitant]

REACTIONS (1)
  - Thrombosis [None]
